FAERS Safety Report 5289665-2 (Version None)
Quarter: 2007Q2

REPORT INFORMATION
  Report Type: 
  Country: None (occurrence: None)
  Receive Date: 20070406
  Receipt Date: 20070330
  Transmission Date: 20071010
  Serious: Yes (Hospitalization)
  Sender: FDA-Public Use
  Company Number: 2007SE01853

PATIENT
  Age: 65 Year
  Sex: Male

DRUGS (4)
  1. ATACAND [Suspect]
     Indication: HYPERTENSION
     Route: 048
     Dates: end: 20070301
  2. CENTYL WITH POTASSIUM CHLORIDE [Interacting]
     Indication: HYPERTENSION
     Route: 048
     Dates: end: 20070301
  3. ALBYL-E [Interacting]
     Indication: CORONARY ARTERY INSUFFICIENCY
     Route: 048
     Dates: end: 20070301
  4. LIPITOR [Concomitant]
     Indication: HYPERCHOLESTEROLAEMIA
     Route: 048

REACTIONS (5)
  - ACUTE PRERENAL FAILURE [None]
  - DRUG INTERACTION [None]
  - FALL [None]
  - HYPOTENSION [None]
  - SYNCOPE [None]
